FAERS Safety Report 13419692 (Version 3)
Quarter: 2019Q3

REPORT INFORMATION
  Report Type: Spontaneous
  Country: US (occurrence: US)
  Receive Date: 20170407
  Receipt Date: 20190717
  Transmission Date: 20191004
  Serious: Yes (Disabling, Other)
  Sender: FDA-Public Use
  Company Number: US-ACCORD-049949

PATIENT
  Age: 56 Year
  Sex: Male

DRUGS (2)
  1. ETOPOSIDE. [Concomitant]
     Active Substance: ETOPOSIDE
     Indication: SMALL CELL CARCINOMA
     Dosage: 6 CYCLE
  2. CISPLATIN. [Suspect]
     Active Substance: CISPLATIN
     Indication: SMALL CELL CARCINOMA
     Dosage: 2 CYCLES OF CISPLATIN (149 MG)
     Route: 042

REACTIONS (5)
  - Retinal degeneration [Unknown]
  - Retinopathy [Recovered/Resolved]
  - Blindness [Not Recovered/Not Resolved]
  - Subretinal fibrosis [Unknown]
  - Maculopathy [Not Recovered/Not Resolved]
